FAERS Safety Report 10204693 (Version 1)
Quarter: 2014Q2

REPORT INFORMATION
  Report Type: Spontaneous
  Country: BR (occurrence: BR)
  Receive Date: 20140529
  Receipt Date: 20140529
  Transmission Date: 20141212
  Serious: Yes (Hospitalization, Disabling, Other)
  Sender: FDA-Public Use
  Company Number: BR-GLAXOSMITHKLINE-A1074614A

PATIENT
  Sex: Female
  Weight: 73 kg

DRUGS (4)
  1. SERETIDE [Suspect]
     Indication: ASTHMA
     Dosage: 1%DS TWICE PER DAY
     Route: 065
     Dates: start: 2006
  2. LOSARTAN [Concomitant]
  3. PURAN T4 [Concomitant]
  4. ASPIRIN [Concomitant]

REACTIONS (5)
  - Meningitis [Recovered/Resolved]
  - Deafness unilateral [Not Recovered/Not Resolved]
  - Coma [Unknown]
  - Aortic valve repair [Unknown]
  - Lung disorder [Recovered/Resolved]
